FAERS Safety Report 7780130-7 (Version None)
Quarter: 2011Q3

REPORT INFORMATION
  Report Type: 
  Country: None (occurrence: None)
  Receive Date: 20110922
  Receipt Date: 20110908
  Transmission Date: 20111222
  Serious: Yes (Hospitalization)
  Sender: FDA-Public Use
  Company Number: 1000023885

PATIENT
  Age: 90 Year
  Sex: Male

DRUGS (6)
  1. PARACETAMOL (PARACETAMOL) (PARACETAMOL) [Concomitant]
  2. RAMIPRIL (RAMIPRIL) (TABLETS) (RAMIPRIL) [Concomitant]
  3. LOXAPAC (LOXAPINE) (LOXAPINE) [Concomitant]
  4. ALFUZOSIN (ALFUZOSIN) (ALFUZOSIN) [Concomitant]
  5. KARDEGIC (ACETYLSALICYLATE LYSINE) (ACETYLSALICYLATE LYSINE) [Concomitant]
  6. MEMANTINE HYDROCHLORIDE [Suspect]
     Dosage: 20 MG (20 MG, 1 IN 1 D), ORAL
     Route: 048
     Dates: start: 20100401

REACTIONS (2)
  - ATRIOVENTRICULAR BLOCK COMPLETE [None]
  - BRADYCARDIA [None]
